FAERS Safety Report 9159283 (Version 3)
Quarter: 2013Q2

REPORT INFORMATION
  Report Type: Spontaneous
  Country: JP (occurrence: None)
  Receive Date: 20130213
  Receipt Date: 20130412
  Transmission Date: 20140414
  Serious: No
  Sender: FDA-Public Use
  Company Number: AXC-2013-000045

PATIENT
  Age: 79 Year
  Sex: Female

DRUGS (2)
  1. URSODEOXYCHOLIC ACID [Suspect]
     Indication: PRODUCT USED FOR UNKNOWN INDICATION
     Route: 048
     Dates: end: 20130201
  2. HERBAL EXTRACT NOS [Concomitant]

REACTIONS (2)
  - Drug eruption [None]
  - Erythema multiforme [None]
